FAERS Safety Report 8622883-1 (Version None)
Quarter: 2012Q3

REPORT INFORMATION
  Report Type: 
  Country: None (occurrence: None)
  Receive Date: 20120827
  Receipt Date: 20120817
  Transmission Date: 20120928
  Serious: Yes (Other)
  Sender: FDA-Public Use
  Company Number: PHHY2012CA026112

PATIENT
  Sex: Male

DRUGS (13)
  1. AFINITOR [Concomitant]
     Indication: NEUROENDOCRINE CARCINOMA METASTATIC
     Dosage: 10 MG, EVERY DAY
     Route: 048
     Dates: start: 20120507, end: 20120531
  2. ZOPICLONE [Concomitant]
  3. IRON [Concomitant]
  4. PROCYCLIDINE HYDROCHLORIDE 2MG TAB [Concomitant]
  5. SANDOSTATIN LAR [Suspect]
     Indication: NEUROENDOCRINE CARCINOMA METASTATIC
     Dosage: 30 MG, EVERY 4 WEEKS
     Route: 030
     Dates: start: 20101025, end: 20120402
  6. AFINITOR [Concomitant]
     Dosage: 5 MG, EVERY DAY
     Route: 048
     Dates: start: 20120531
  7. PERPHENAZINE [Concomitant]
  8. VITAMIN B1 TAB [Concomitant]
  9. SPIRONOLACTONE [Concomitant]
  10. PANTOPRAZOLE [Concomitant]
  11. FUROSEMIDE [Concomitant]
  12. FOLIC ACID [Concomitant]
  13. MULTI-VITAMINS [Concomitant]

REACTIONS (6)
  - HAEMORRHAGE [None]
  - NEOPLASM MALIGNANT [None]
  - NEOPLASM PROGRESSION [None]
  - PLATELET COUNT INCREASED [None]
  - BILE DUCT OBSTRUCTION [None]
  - JAUNDICE CHOLESTATIC [None]
